FAERS Safety Report 9837268 (Version 2)
Quarter: 2014Q2

REPORT INFORMATION
  Report Type: Spontaneous
  Country: US (occurrence: None)
  Receive Date: 20131205
  Receipt Date: 20140416
  Transmission Date: 20141212
  Serious: Yes (Other)
  Sender: FDA-Public Use
  Company Number: 163-POMAL-13102063

PATIENT
  Age: 74 Year
  Sex: Female
  Weight: 90.72 kg

DRUGS (6)
  1. POMALYST [Suspect]
     Indication: PLASMA CELL MYELOMA
     Dosage: 2 MG, 21 IN 21 D, PO
     Route: 048
     Dates: start: 20130315
  2. ASPIRIN (ACETYLSALICYLIC ACID) [Concomitant]
  3. VITAMINS (VITAMINS) [Concomitant]
  4. MEGACE (MEGESTROL ACETATE) [Concomitant]
  5. MAGNEISUM (MAGENESIUM) [Concomitant]
  6. STEROIDS (CORTICOSTEROIDS) [Concomitant]

REACTIONS (4)
  - Pollakiuria [None]
  - Rash pruritic [None]
  - Urticaria [None]
  - Pain in extremity [None]
